FAERS Safety Report 25362206 (Version 1)
Quarter: 2025Q2

REPORT INFORMATION
  Report Type: Spontaneous
  Country: US (occurrence: None)
  Receive Date: 20250523
  Receipt Date: 20250523
  Transmission Date: 20250716
  Serious: Yes (Life-Threatening, Disabling, Other)
  Sender: FDA-CTU
  Company Number: None

PATIENT
  Age: 36 Year
  Sex: Female

DRUGS (2)
  1. FLUOXETINE [Suspect]
     Active Substance: FLUOXETINE HYDROCHLORIDE
     Indication: Depression
     Route: 048
  2. FLUOXETINE [Suspect]
     Active Substance: FLUOXETINE HYDROCHLORIDE
     Indication: Anxiety

REACTIONS (11)
  - Intrusive thoughts [None]
  - Anxiety [None]
  - Obsessive rumination [None]
  - Insomnia [None]
  - Sleep terror [None]
  - Feeling of despair [None]
  - Fear [None]
  - Suicidal ideation [None]
  - Akathisia [None]
  - Symptom masked [None]
  - Obsessive-compulsive disorder [None]

NARRATIVE: CASE EVENT DATE: 20241022
